FAERS Safety Report 7739185-8 (Version None)
Quarter: 2011Q3

REPORT INFORMATION
  Report Type: 
  Country: None (occurrence: None)
  Receive Date: 20110909
  Receipt Date: 20110829
  Transmission Date: 20111222
  Serious: Yes (Other)
  Sender: FDA-Public Use
  Company Number: DE-JNJFOC-20110900698

PATIENT
  Sex: Male

DRUGS (1)
  1. XARELTO [Suspect]
     Indication: KNEE ARTHROPLASTY
     Route: 048

REACTIONS (3)
  - HALLUCINATION [None]
  - NERVOUS SYSTEM DISORDER [None]
  - ATRIAL FIBRILLATION [None]
